FAERS Safety Report 4731700-1 (Version None)
Quarter: 2005Q3

REPORT INFORMATION
  Report Type: 
  Country: None (occurrence: None)
  Receive Date: 20050725
  Receipt Date: 20041018
  Transmission Date: 20060218
  Serious: Yes (Disabling)
  Sender: FDA-Public Use
  Company Number: WAES 0306USA00889

PATIENT
  Age: 50 Year
  Sex: Male

DRUGS (5)
  1. VIOXX [Suspect]
     Indication: ABDOMINAL PAIN LOWER
     Dosage: 25 MG/DAILY/PO
     Route: 048
     Dates: start: 20010221
  2. VIOXX [Suspect]
     Indication: ABDOMINAL PAIN LOWER
     Dosage: 25 MG/DAILY/PO
     Route: 048
     Dates: start: 20020703
  3. INDOCIN [Concomitant]
  4. LORTAB [Concomitant]
  5. SKELAXIN [Concomitant]

REACTIONS (10)
  - ABDOMINAL PAIN UPPER [None]
  - ADVERSE EVENT [None]
  - BRONCHITIS [None]
  - CHEST PAIN [None]
  - DYSURIA [None]
  - MUSCLE SPASMS [None]
  - MUSCLE STRAIN [None]
  - PHARYNGOLARYNGEAL PAIN [None]
  - SINUSITIS [None]
  - UPPER RESPIRATORY TRACT INFECTION [None]
